FAERS Safety Report 12964267 (Version 2)
Quarter: 2016Q4

REPORT INFORMATION
  Report Type: Spontaneous
  Country: US (occurrence: US)
  Receive Date: 20161122
  Receipt Date: 20161124
  Transmission Date: 20170207
  Serious: No
  Sender: FDA-Public Use
  Company Number: US-PFIZER INC-2016532334

PATIENT
  Age: 80 Year
  Sex: Female

DRUGS (3)
  1. AMIODARONE HCL [Suspect]
     Active Substance: AMIODARONE HYDROCHLORIDE
     Dosage: UNK
  2. ASA [Suspect]
     Active Substance: ASPIRIN
     Dosage: UNK
  3. MULTAQ [Suspect]
     Active Substance: DRONEDARONE
     Dosage: UNK

REACTIONS (1)
  - Drug hypersensitivity [Unknown]
